FAERS Safety Report 25862765 (Version 1)
Quarter: 2025Q3

REPORT INFORMATION
  Report Type: Spontaneous
  Country: JP (occurrence: JP)
  Receive Date: 20250930
  Receipt Date: 20250930
  Transmission Date: 20251020
  Serious: Yes (Other)
  Sender: STRIDES
  Company Number: JP-STRIDES ARCOLAB LIMITED-2025SP012331

PATIENT

DRUGS (9)
  1. OLANZAPINE [Suspect]
     Active Substance: OLANZAPINE
     Indication: Vomiting
     Route: 048
  2. OLANZAPINE [Suspect]
     Active Substance: OLANZAPINE
     Indication: Nausea
  3. PALONOSETRON [Suspect]
     Active Substance: PALONOSETRON
     Indication: Nausea
     Route: 042
  4. PALONOSETRON [Suspect]
     Active Substance: PALONOSETRON
     Indication: Vomiting
  5. DEXAMETHASONE [Suspect]
     Active Substance: DEXAMETHASONE
     Indication: Nausea
     Route: 042
  6. DEXAMETHASONE [Suspect]
     Active Substance: DEXAMETHASONE
     Indication: Vomiting
     Route: 042
  7. APREPITANT [Suspect]
     Active Substance: APREPITANT
     Indication: Nausea
     Route: 048
  8. APREPITANT [Suspect]
     Active Substance: APREPITANT
     Indication: Vomiting
     Route: 048
  9. MELPHALAN [Concomitant]
     Active Substance: MELPHALAN
     Indication: Plasma cell myeloma
     Route: 042

REACTIONS (2)
  - Hiccups [Unknown]
  - Off label use [Unknown]
